FAERS Safety Report 19170495 (Version 1)
Quarter: 2021Q2

REPORT INFORMATION
  Report Type: Spontaneous
  Country: CA (occurrence: CA)
  Receive Date: 20210422
  Receipt Date: 20210422
  Transmission Date: 20210717
  Serious: Yes (Other)
  Sender: FDA-Public Use
  Company Number: CA-SAMSUNG BIOEPIS-SB-2021-09931

PATIENT
  Age: 38 Year
  Sex: Male

DRUGS (1)
  1. INFLIXIMAB [Suspect]
     Active Substance: INFLIXIMAB
     Indication: CROHN^S DISEASE
     Route: 042

REACTIONS (6)
  - Intentional product use issue [Unknown]
  - Malaise [Unknown]
  - Haemorrhoids [Unknown]
  - Asthenia [Unknown]
  - Rectal haemorrhage [Unknown]
  - Off label use [Unknown]
